FAERS Safety Report 15705696 (Version 1)
Quarter: 2018Q4

REPORT INFORMATION
  Report Type: Spontaneous
  Country: DE (occurrence: DE)
  Receive Date: 20181210
  Receipt Date: 20181210
  Transmission Date: 20190205
  Serious: Yes (Other)
  Sender: FDA-Public Use
  Company Number: DE-TEVA-2018-DE-982876

PATIENT
  Age: 58 Year
  Sex: Female

DRUGS (2)
  1. AMOXICILLIN-RATIOPHARM 1000 MG FILMTABLETTEN [Suspect]
     Active Substance: AMOXICILLIN
     Indication: WOUND
     Dosage: 3000 MILLIGRAM DAILY; 1-1-1
     Route: 048
     Dates: start: 20181126, end: 20181128
  2. AMOXICILLIN-RATIOPHARM 1000 MG FILMTABLETTEN [Suspect]
     Active Substance: AMOXICILLIN
     Indication: LYMPHADENOPATHY

REACTIONS (8)
  - Angioedema [Not Recovered/Not Resolved]
  - Thirst [Not Recovered/Not Resolved]
  - Aphthous ulcer [Not Recovered/Not Resolved]
  - Asthenia [Not Recovered/Not Resolved]
  - Fatigue [Not Recovered/Not Resolved]
  - Urticaria [Not Recovered/Not Resolved]
  - Headache [Not Recovered/Not Resolved]
  - Influenza like illness [Not Recovered/Not Resolved]

NARRATIVE: CASE EVENT DATE: 201811
